FAERS Safety Report 5725079-6 (Version None)
Quarter: 2008Q2

REPORT INFORMATION
  Report Type: 
  Country: None (occurrence: None)
  Receive Date: 20080501
  Receipt Date: 20080417
  Transmission Date: 20081010
  Serious: Yes (Hospitalization)
  Sender: FDA-Public Use
  Company Number: GB-AMGEN-UK273891

PATIENT
  Sex: Male
  Weight: 87 kg

DRUGS (2)
  1. PANITUMUMAB [Suspect]
     Indication: COLORECTAL CANCER
     Route: 042
     Dates: start: 20080125
  2. IRINOTECAN HCL [Concomitant]
     Route: 065
     Dates: start: 20080125, end: 20080328

REACTIONS (1)
  - BURSITIS INFECTIVE STAPHYLOCOCCAL [None]
